FAERS Safety Report 5885207-9 (Version None)
Quarter: 2008Q3

REPORT INFORMATION
  Report Type: 
  Country: None (occurrence: None)
  Receive Date: 20080916
  Receipt Date: 20080904
  Transmission Date: 20090109
  Serious: Yes (Other)
  Sender: FDA-Public Use
  Company Number: FR-PFIZER INC-2008046510

PATIENT
  Sex: Female
  Weight: 62 kg

DRUGS (1)
  1. CHANTIX [Suspect]
     Indication: SMOKING CESSATION THERAPY

REACTIONS (4)
  - CONVERSION DISORDER [None]
  - DEPRESSION [None]
  - NAUSEA [None]
  - SLEEP DISORDER [None]
